FAERS Safety Report 9460685 (Version 1)
Quarter: 2013Q3

REPORT INFORMATION
  Report Type: Spontaneous
  Country: FR (occurrence: None)
  Receive Date: 20130813
  Receipt Date: 20130813
  Transmission Date: 20140515
  Serious: Yes (Hospitalization)
  Sender: FDA-Public Use
  Company Number: DSM02013-00654

PATIENT
  Age: 75 Year
  Sex: Male

DRUGS (12)
  1. COOLEMETEC (HYDROCHLOROTHIAZIDE OLMESARTAN MEDOXOMIL) (TABLET) (HYDROCHLOROTHIAZIDE OLMESARTAN MEDOXOMIL) [Suspect]
     Indication: HYPERTENSION
     Dosage: 1 IN 1 D
     Route: 048
     Dates: start: 20130412, end: 20130709
  2. DIFFU K (POTASSIUM CHLORIDE) (POTASSIUM CHLORIDE) [Concomitant]
  3. MINISINTROM (ACENOCOUMAROL) [Concomitant]
  4. SOTALEX (SOTALOL HYDROCHLORIDE) [Concomitant]
  5. DAONIL (GLIBENCLAMIDE) [Concomitant]
  6. DEPAMIDE (VALPROMIDE) [Concomitant]
  7. DEROXAT (PAROXETINE HYDROCHLORIDE) [Concomitant]
  8. IMOVANE (ZOPICLONE) [Concomitant]
  9. PERMIXON (SERENOA REPENS) [Concomitant]
  10. UROREC (SILDODOSIN) [Concomitant]
  11. LODALES (SIMVASTATIN) [Concomitant]
  12. INEXIUM (ESOMEPRAZOLE MAGNESIUM) [Concomitant]

REACTIONS (7)
  - Drug administration error [None]
  - Dehydration [None]
  - Weight decreased [None]
  - Gastroenteritis [None]
  - Paraesthesia [None]
  - Dyspnoea [None]
  - Polyuria [None]
